FAERS Safety Report 9704479 (Version 2)
Quarter: 2013Q4

REPORT INFORMATION
  Report Type: Spontaneous
  Country: FR (occurrence: FR)
  Receive Date: 20131122
  Receipt Date: 20131129
  Transmission Date: 20140711
  Serious: Yes (Hospitalization)
  Sender: FDA-Public Use
  Company Number: FR-009507513-1311FRA008602

PATIENT
  Age: 89 Year
  Sex: Male

DRUGS (9)
  1. NASONEX [Suspect]
     Dosage: UNK
     Route: 045
     Dates: end: 201309
  2. POLARAMINE [Suspect]
     Dosage: 1 DF, QD
     Route: 048
     Dates: end: 201309
  3. LOVENOX [Suspect]
     Indication: PULMONARY EMBOLISM
     Dosage: UNK
     Route: 058
     Dates: start: 20130911, end: 201309
  4. NOVATREX (METHOTREXATE) [Suspect]
     Indication: RHEUMATOID ARTHRITIS
     Dosage: 4 DF, QW
     Route: 048
     Dates: end: 20130911
  5. CORDARONE [Concomitant]
     Dosage: 100 MG, QOD
     Route: 048
  6. TENORMINE [Concomitant]
     Dosage: 25 MG, QD
     Route: 048
  7. KARDEGIC [Concomitant]
     Dosage: 75 MG, QD
     Route: 048
  8. LASILIX [Concomitant]
     Dosage: 40 MG, QD
     Route: 048
  9. KALEORID [Concomitant]
     Dosage: UNK
     Route: 048

REACTIONS (2)
  - Anaemia macrocytic [Not Recovered/Not Resolved]
  - Thrombocytopenia [Recovered/Resolved with Sequelae]
